FAERS Safety Report 6207433-1 (Version None)
Quarter: 2009Q2

REPORT INFORMATION
  Report Type: 
  Country: None (occurrence: None)
  Receive Date: 20090528
  Receipt Date: 20090520
  Transmission Date: 20091009
  Serious: Yes (Hospitalization)
  Sender: FDA-Public Use
  Company Number: PHHY2009FR13531

PATIENT
  Sex: Female

DRUGS (7)
  1. ACLASTA [Suspect]
  2. CORTICOSTEROIDS [Concomitant]
     Indication: CROHN'S DISEASE
  3. CORTICOSTEROIDS [Concomitant]
     Indication: COLECTOMY
  4. LEVOTHYROX [Concomitant]
     Dosage: 25 UG/DAY
     Route: 048
  5. DIFFU K [Concomitant]
     Dosage: 600 MG; 4 TABLETS PER DAY
  6. IMODIUM [Concomitant]
     Dosage: WHEN REQUIRED
  7. SPASFON [Concomitant]
     Dosage: WHEN REQUIRED

REACTIONS (4)
  - COLITIS ULCERATIVE [None]
  - HYPOCALCAEMIA [None]
  - HYPOKALAEMIA [None]
  - PARAESTHESIA [None]
